FAERS Safety Report 16258687 (Version 2)
Quarter: 2019Q2

REPORT INFORMATION
  Report Type: Spontaneous
  Country: MX (occurrence: MX)
  Receive Date: 20190430
  Receipt Date: 20190527
  Transmission Date: 20190711
  Serious: Yes (Other)
  Sender: FDA-Public Use
  Company Number: PHHY2019MX097620

PATIENT
  Age: 86 Year
  Sex: Female
  Weight: 49 kg

DRUGS (3)
  1. TRAVATAN [Suspect]
     Active Substance: TRAVOPROST
     Indication: GLAUCOMA
     Dosage: 1 DRP, QD(2.5 ML)
     Route: 047
     Dates: start: 2009
  2. OMEPRAZOL [Concomitant]
     Active Substance: OMEPRAZOLE
     Indication: HIATUS HERNIA
     Dosage: 1 DF, BID
     Route: 048
  3. GLUCOBAY [Concomitant]
     Active Substance: ACARBOSE
     Indication: BLOOD GLUCOSE ABNORMAL
     Dosage: 2 DF, QD
     Route: 048

REACTIONS (5)
  - Cervix neoplasm [Unknown]
  - Diarrhoea [Unknown]
  - Vaginal neoplasm [Recovering/Resolving]
  - Decreased appetite [Recovering/Resolving]
  - Vomiting [Unknown]

NARRATIVE: CASE EVENT DATE: 201710
